FAERS Safety Report 16776385 (Version 1)
Quarter: 2019Q3

REPORT INFORMATION
  Report Type: Spontaneous
  Country: US (occurrence: US)
  Receive Date: 20190716
  Receipt Date: 20190716
  Transmission Date: 20191005
  Serious: No
  Sender: FDA-Public Use
  Company Number: None

PATIENT
  Age: 77 Year
  Sex: Female

DRUGS (1)
  1. OTEZLA [Suspect]
     Active Substance: APREMILAST
     Indication: JUVENILE PSORIATIC ARTHRITIS
     Route: 048

REACTIONS (4)
  - Diarrhoea [None]
  - Feeling abnormal [None]
  - Constipation [None]
  - Chills [None]
